FAERS Safety Report 5455708-6 (Version None)
Quarter: 2007Q3

REPORT INFORMATION
  Report Type: 
  Country: None (occurrence: None)
  Receive Date: 20070914
  Receipt Date: 20070829
  Transmission Date: 20080115
  Serious: No
  Sender: FDA-Public Use
  Company Number: TPA2007A01829

PATIENT
  Age: 64 Year
  Sex: Female
  Weight: 73.9363 kg

DRUGS (2)
  1. ACTOS [Suspect]
     Indication: INSULIN-REQUIRING TYPE II DIABETES MELLITUS
     Dosage: 30 MG, 1 IN 1 D, PER ORAL
     Route: 048
     Dates: start: 20070801
  2. ACIPHEX [Concomitant]

REACTIONS (7)
  - BLOOD GLUCOSE INCREASED [None]
  - HEADACHE [None]
  - INCORRECT DOSE ADMINISTERED [None]
  - MUSCULOSKELETAL PAIN [None]
  - NECK PAIN [None]
  - TREATMENT NONCOMPLIANCE [None]
  - UNDERDOSE [None]
